FAERS Safety Report 5930716-7 (Version None)
Quarter: 2008Q4

REPORT INFORMATION
  Report Type: 
  Country: None (occurrence: None)
  Receive Date: 20081022
  Receipt Date: 20081006
  Transmission Date: 20090506
  Serious: Yes (Hospitalization)
  Sender: FDA-Public Use
  Company Number: 2008BI026361

PATIENT
  Age: 66 Year
  Sex: Male

DRUGS (8)
  1. TYSABRI [Suspect]
     Indication: MULTIPLE SCLEROSIS
     Dosage: 300 MG; QW; IV
     Route: 042
     Dates: start: 20070620
  2. ANTIHYPERTENSIVE [Concomitant]
  3. MUSCLE RELAXANT [Concomitant]
  4. METFORMIN HCL [Concomitant]
  5. KARDEGIC [Concomitant]
  6. ZOXAN [Concomitant]
  7. AVONEX [Concomitant]
  8. REBIF [Concomitant]

REACTIONS (1)
  - PULMONARY EMBOLISM [None]
